FAERS Safety Report 8598544-4 (Version None)
Quarter: 2012Q3

REPORT INFORMATION
  Report Type: 
  Country: None (occurrence: None)
  Receive Date: 20120816
  Receipt Date: 20120807
  Transmission Date: 20120928
  Serious: Yes (Hospitalization)
  Sender: FDA-Public Use
  Company Number: BR-ASTRAZENECA-2012SE56329

PATIENT
  Age: 87 Year
  Sex: Male

DRUGS (1)
  1. CRESTOR [Suspect]
     Indication: BLOOD CHOLESTEROL INCREASED
     Route: 048
     Dates: start: 20100101

REACTIONS (4)
  - MYOCARDIAL ISCHAEMIA [None]
  - INFECTION [None]
  - MITRAL VALVE DISEASE [None]
  - CORONARY ARTERY OCCLUSION [None]
